FAERS Safety Report 4782925-0 (Version None)
Quarter: 2005Q3

REPORT INFORMATION
  Report Type: 
  Country: None (occurrence: None)
  Receive Date: 20050927
  Receipt Date: 20050912
  Transmission Date: 20060218
  Serious: Yes (Hospitalization)
  Sender: FDA-Public Use
  Company Number: 2005BI017473

PATIENT
  Age: 26 Year
  Sex: Female
  Weight: 67.586 kg

DRUGS (2)
  1. AVONEX [Suspect]
     Indication: MULTIPLE SCLEROSIS
     Dosage: IM
     Route: 030
  2. PROVIGIL [Concomitant]

REACTIONS (15)
  - ANTINUCLEAR ANTIBODY POSITIVE [None]
  - ARTHRALGIA [None]
  - DRUG INTERACTION [None]
  - FLUSHING [None]
  - HEADACHE [None]
  - HYPERSENSITIVITY [None]
  - PAIN IN EXTREMITY [None]
  - RASH [None]
  - SINUS TACHYCARDIA [None]
  - STRESS [None]
  - SWELLING [None]
  - TOXIC SHOCK SYNDROME [None]
  - URTICARIA [None]
  - VISION BLURRED [None]
  - WHITE BLOOD CELL COUNT INCREASED [None]
